FAERS Safety Report 7578896-4 (Version None)
Quarter: 2011Q2

REPORT INFORMATION
  Report Type: 
  Country: None (occurrence: None)
  Receive Date: 20110628
  Receipt Date: 20110615
  Transmission Date: 20111010
  Serious: Yes (Hospitalization)
  Sender: FDA-Public Use
  Company Number: DK-SANOFI-AVENTIS-2011SA039429

PATIENT
  Sex: Female

DRUGS (9)
  1. BLINDED THERAPY [Suspect]
  2. PANTOPRAZOLE [Concomitant]
     Route: 048
     Dates: start: 20110201
  3. OPTIPEN [Suspect]
  4. INSULIN GLARGINE [Suspect]
     Route: 058
  5. SIMVASTATIN [Concomitant]
     Dates: start: 20040301
  6. ALL OTHER THERAPEUTIC PRODUCTS [Concomitant]
     Indication: HYPERTENSION
     Dates: start: 20101001
  7. LERCANIDIPINE [Concomitant]
     Indication: HYPERTENSION
     Dates: start: 20101001
  8. CLOPIDOGREL [Concomitant]
     Indication: ARTERIOSCLEROSIS CORONARY ARTERY
     Dates: start: 20040301
  9. CODEINE [Concomitant]
     Indication: COUGH
     Dates: start: 20090501

REACTIONS (1)
  - RADIUS FRACTURE [None]
